FAERS Safety Report 9525596 (Version 1)
Quarter: 2013Q3

REPORT INFORMATION
  Report Type: Spontaneous
  Country: US (occurrence: US)
  Receive Date: 20130916
  Receipt Date: 20130916
  Transmission Date: 20140515
  Serious: Yes (Hospitalization)
  Sender: FDA-Public Use
  Company Number: US-MYLANLABS-2013S1019899

PATIENT
  Age: 61 Year
  Sex: Male

DRUGS (6)
  1. FLUOROURACIL [Suspect]
     Indication: GASTRIC CANCER STAGE IV
     Dosage: INFUSIONS; PART OF ECF CHEMOTHERAPY
     Route: 050
  2. XELODA [Suspect]
     Indication: GASTRIC CANCER STAGE IV
     Dosage: 1600 MG/M2/24; PART OF ECX CHEMOTHERAPY
     Route: 048
  3. EPIRUBICIN [Concomitant]
     Indication: GASTRIC CANCER STAGE IV
     Dosage: PART OF ECF CHEMOTHERAPY
     Route: 065
  4. CISPLATIN [Concomitant]
     Indication: GASTRIC CANCER STAGE IV
     Dosage: PART OF ECF CHEMOTHERAPY
     Route: 065
  5. CISPLATIN [Concomitant]
     Indication: GASTRIC CANCER STAGE IV
     Dosage: PART OF ECX CHEMOTHERAPY
     Route: 065
  6. EPIRUBICIN [Concomitant]
     Indication: GASTRIC CANCER STAGE IV
     Dosage: PART OF ECX CHEMOTHERAPY
     Route: 065

REACTIONS (1)
  - Cardiotoxicity [Recovered/Resolved]
